FAERS Safety Report 7197558-9 (Version None)
Quarter: 2010Q4

REPORT INFORMATION
  Report Type: 
  Country: None (occurrence: None)
  Receive Date: 20101227
  Receipt Date: 20101214
  Transmission Date: 20110411
  Serious: Yes (Death, Life-Threatening, Hospitalization)
  Sender: FDA-Public Use
  Company Number: US-SANOFI-AVENTIS-2010SA045583

PATIENT
  Age: 76 Year
  Sex: Male

DRUGS (9)
  1. MULTAQ [Suspect]
     Indication: ATRIAL FIBRILLATION
     Route: 048
     Dates: start: 20100706, end: 20100701
  2. NIACIN [Suspect]
     Route: 065
  3. AUGMENTIN '125' [Suspect]
     Route: 065
  4. LOPRESSOR [Concomitant]
  5. LASIX [Concomitant]
  6. PRILOSEC [Concomitant]
  7. FLONASE [Concomitant]
  8. BUDESONIDE/FORMOTEROL [Concomitant]
  9. SOTALOL HCL [Concomitant]
     Dates: end: 20100709

REACTIONS (8)
  - ATRIAL FIBRILLATION [None]
  - CHOLESTATIC LIVER INJURY [None]
  - CONDITION AGGRAVATED [None]
  - GALLBLADDER NECROSIS [None]
  - MULTI-ORGAN FAILURE [None]
  - RENAL FAILURE [None]
  - RESPIRATORY FAILURE [None]
  - SEPSIS [None]
